FAERS Safety Report 9610596 (Version 1)
Quarter: 2013Q4

REPORT INFORMATION
  Report Type: Spontaneous
  Country: CA (occurrence: CA)
  Receive Date: 20131009
  Receipt Date: 20131009
  Transmission Date: 20140711
  Serious: Yes (Other)
  Sender: FDA-Public Use
  Company Number: CA-PFIZER INC-2013285597

PATIENT
  Age: 30 Year
  Sex: Male

DRUGS (10)
  1. LEVETIRACETAM [Suspect]
     Indication: STATUS EPILEPTICUS
  2. TOPIRAMATE [Suspect]
     Indication: STATUS EPILEPTICUS
  3. GABAPENTIN [Suspect]
     Indication: STATUS EPILEPTICUS
  4. PHENOBARBITAL [Suspect]
     Indication: STATUS EPILEPTICUS
  5. ACYCLOVIR [Suspect]
     Indication: PORPHYRIA ACUTE
  6. LACOSAMIDE [Suspect]
     Indication: PORPHYRIA ACUTE
  7. VIGABATRIN [Suspect]
     Indication: PORPHYRIA ACUTE
  8. PHENYTOIN [Concomitant]
     Indication: STATUS EPILEPTICUS
     Route: 042
  9. MIDAZOLAM [Concomitant]
     Indication: STATUS EPILEPTICUS
  10. PROPOFOL [Concomitant]
     Indication: STATUS EPILEPTICUS

REACTIONS (2)
  - Condition aggravated [Unknown]
  - Depressed level of consciousness [Unknown]
